FAERS Safety Report 18151807 (Version 1)
Quarter: 2020Q3

REPORT INFORMATION
  Report Type: Spontaneous
  Country: US (occurrence: US)
  Receive Date: 20200814
  Receipt Date: 20200814
  Transmission Date: 20201103
  Serious: No
  Sender: FDA-Public Use
  Company Number: US-APOTEX-2020AP010790

PATIENT
  Age: 10 Year
  Sex: Male

DRUGS (6)
  1. METHYLPHENIDATE. [Interacting]
     Active Substance: METHYLPHENIDATE
     Indication: ATTENTION DEFICIT HYPERACTIVITY DISORDER
     Dosage: 18 MG, UNK
     Route: 048
  2. METHYLPHENIDATE. [Concomitant]
     Active Substance: METHYLPHENIDATE
     Indication: ATTENTION DEFICIT HYPERACTIVITY DISORDER
     Dosage: UNK UNK, Q. AF
     Route: 065
  3. GUANFACINE. [Interacting]
     Active Substance: GUANFACINE
     Dosage: UNK, BID DOSE WAS SPLIT INTO TWICE DAILY
     Route: 065
  4. GUANFACINE. [Interacting]
     Active Substance: GUANFACINE
     Indication: ATTENTION DEFICIT HYPERACTIVITY DISORDER
     Dosage: 2 MG, Q.H.S., EXTENDED RELEASE
     Route: 065
  5. METHYLPHENIDATE. [Interacting]
     Active Substance: METHYLPHENIDATE
     Dosage: 45 MG, QD
     Route: 048
  6. GUANFACINE. [Suspect]
     Active Substance: GUANFACINE
     Indication: ATTENTION DEFICIT HYPERACTIVITY DISORDER
     Dosage: UNK
     Route: 065

REACTIONS (9)
  - Rash maculo-papular [Recovered/Resolved]
  - Hypersensitivity [Unknown]
  - Rash [Recovered/Resolved]
  - Peripheral swelling [Recovered/Resolved]
  - Drug interaction [Unknown]
  - Sedation [Unknown]
  - Pruritus [Unknown]
  - Insomnia [Unknown]
  - Disturbance in attention [Recovered/Resolved]
